FAERS Safety Report 24209602 (Version 1)
Quarter: 2024Q3

REPORT INFORMATION
  Report Type: Spontaneous
  Country: JP (occurrence: JP)
  Receive Date: 20240814
  Receipt Date: 20240814
  Transmission Date: 20241016
  Serious: Yes (Other)
  Sender: GLAND PHARMA
  Company Number: JP-GLANDPHARMA-JP-2024GLNLIT00596

PATIENT
  Age: 88 Year
  Sex: Male

DRUGS (1)
  1. CARBOPLATIN [Suspect]
     Active Substance: CARBOPLATIN
     Indication: Lung squamous cell carcinoma stage III
     Route: 065

REACTIONS (3)
  - Interstitial lung disease [Recovering/Resolving]
  - Radiation pneumonitis [Recovering/Resolving]
  - Product use in unapproved indication [Unknown]
